FAERS Safety Report 15689649 (Version 1)
Quarter: 2018Q4

REPORT INFORMATION
  Report Type: Spontaneous
  Country: US (occurrence: US)
  Receive Date: 20181126
  Receipt Date: 20181126
  Transmission Date: 20190205
  Serious: No
  Sender: FDA-Public Use
  Company Number: None

PATIENT
  Age: 16 Year
  Sex: Female
  Weight: 97.52 kg

DRUGS (2)
  1. MAXULT [Concomitant]
  2. RIZATRIPTAN 5MG [Suspect]
     Active Substance: RIZATRIPTAN
     Route: 048
     Dates: start: 20171020, end: 20171201

REACTIONS (1)
  - Vomiting [None]
